FAERS Safety Report 4908285-X (Version None)
Quarter: 2006Q1

REPORT INFORMATION
  Report Type: 
  Country: None (occurrence: None)
  Receive Date: 20060210
  Receipt Date: 20060201
  Transmission Date: 20060701
  Serious: Yes (Other)
  Sender: FDA-Public Use
  Company Number: US-JNJFOC-20060201484

PATIENT
  Age: 62 Year
  Sex: Female
  Weight: 56.7 kg

DRUGS (6)
  1. TOPAMAX [Suspect]
     Indication: MIGRAINE PROPHYLAXIS
     Route: 048
  2. ZOMIG [Concomitant]
     Indication: MIGRAINE
  3. FOSSAMAX [Concomitant]
  4. AVISTA [Concomitant]
  5. AMITRIP [Concomitant]
     Indication: MIGRAINE
  6. EFFEXOR [Concomitant]
     Indication: MIGRAINE

REACTIONS (1)
  - BASEDOW'S DISEASE [None]
